FAERS Safety Report 9412417 (Version 3)
Quarter: 2013Q3

REPORT INFORMATION
  Report Type: Spontaneous
  Country: US (occurrence: US)
  Receive Date: 20130722
  Receipt Date: 20130806
  Transmission Date: 20140515
  Serious: Yes (Other)
  Sender: FDA-Public Use
  Company Number: US-ELI_LILLY_AND_COMPANY-US201307004869

PATIENT
  Age: 66 Year
  Sex: Female

DRUGS (3)
  1. PROZAC [Suspect]
     Indication: DEPRESSION
     Dosage: 10 MG, QD
     Dates: start: 1988
  2. PROZAC [Suspect]
     Indication: ANXIETY
     Dosage: 20 MG, QD
  3. PROZAC [Suspect]
     Dosage: 30 MG, QD
     Dates: start: 20130705

REACTIONS (21)
  - Hypertension [Unknown]
  - Connective tissue disorder [Unknown]
  - Fibromyalgia [Unknown]
  - Chest discomfort [Unknown]
  - Dyspnoea [Unknown]
  - Arthritis [Unknown]
  - Bursitis [Unknown]
  - Musculoskeletal pain [Unknown]
  - Urinary tract infection [Unknown]
  - Abdominal discomfort [Unknown]
  - Feeling abnormal [Unknown]
  - Weight decreased [Unknown]
  - Dizziness postural [Unknown]
  - Nausea [Unknown]
  - Drug hypersensitivity [Unknown]
  - Nervousness [Unknown]
  - Insomnia [Not Recovered/Not Resolved]
  - Headache [Unknown]
  - Dizziness [Unknown]
  - Agitation [Not Recovered/Not Resolved]
  - Wrong technique in drug usage process [Recovered/Resolved]
